FAERS Safety Report 10830646 (Version 3)
Quarter: 2015Q2

REPORT INFORMATION
  Report Type: Spontaneous
  Country: IT (occurrence: IT)
  Receive Date: 20150219
  Receipt Date: 20150420
  Transmission Date: 20150821
  Serious: Yes (Death)
  Sender: FDA-Public Use
  Company Number: IT-BRACCO-004306

PATIENT
  Age: 76 Year
  Sex: Male

DRUGS (1)
  1. IOPAMIRO [Suspect]
     Active Substance: IOPAMIDOL
     Indication: COMPUTERISED TOMOGRAM
     Route: 042
     Dates: start: 20150212, end: 20150212

REACTIONS (4)
  - Cardiac arrest [Fatal]
  - Pulmonary embolism [None]
  - Cardio-respiratory arrest [None]
  - Dyspnoea [Fatal]

NARRATIVE: CASE EVENT DATE: 20150212
